FAERS Safety Report 5337218-X (Version None)
Quarter: 2007Q2

REPORT INFORMATION
  Report Type: 
  Country: None (occurrence: None)
  Receive Date: 20070529
  Receipt Date: 20070524
  Transmission Date: 20071010
  Serious: Yes (Hospitalization)
  Sender: FDA-Public Use
  Company Number: A0652848A

PATIENT
  Age: 71 Year
  Sex: Female

DRUGS (9)
  1. FLOVENT [Suspect]
     Indication: ASTHMA
     Dosage: 110MCG TWICE PER DAY
     Route: 055
     Dates: start: 20060401
  2. ALBUTEROL [Concomitant]
  3. TOPROL-XL [Concomitant]
  4. LOVASTATIN [Concomitant]
  5. LASIX [Concomitant]
  6. KLOR-CON [Concomitant]
  7. SPIRONOLACTONE [Concomitant]
  8. ASPIRIN [Concomitant]
  9. ZAROXOLYN [Concomitant]

REACTIONS (4)
  - BRONCHITIS [None]
  - DRUG INEFFECTIVE [None]
  - DYSPNOEA [None]
  - PHARMACEUTICAL PRODUCT COMPLAINT [None]
